FAERS Safety Report 17857079 (Version 1)
Quarter: 2020Q2

REPORT INFORMATION
  Report Type: Spontaneous
  Country: CN (occurrence: CN)
  Receive Date: 20200603
  Receipt Date: 20200603
  Transmission Date: 20200714
  Serious: Yes (Other)
  Sender: FDA-Public Use
  Company Number: CN-BAYER-2020-104890

PATIENT
  Age: 70 Year
  Sex: Female

DRUGS (5)
  1. STIVARGA [Suspect]
     Active Substance: REGORAFENIB
     Indication: METASTASES TO LIVER
     Dosage: 120 MG, D1-21?Q28D
     Dates: start: 2017, end: 201712
  2. STIVARGA [Suspect]
     Active Substance: REGORAFENIB
     Indication: RECTAL CANCER
     Dosage: 80 MG, D1-21?Q28D
     Route: 048
     Dates: start: 201705, end: 2017
  3. APATINIB [Concomitant]
     Active Substance: APATINIB
  4. RALTITREXED [Concomitant]
     Active Substance: RALTITREXED
     Dosage: 7 CYCLES
     Dates: start: 201712, end: 201806
  5. BEVACIZUMAB. [Concomitant]
     Active Substance: BEVACIZUMAB
     Dosage: 7 CYCLES
     Dates: start: 201712, end: 201806

REACTIONS (16)
  - Metastases to liver [None]
  - Pulmonary mass [None]
  - Metastases to lung [None]
  - Palmar-plantar erythrodysaesthesia syndrome [None]
  - Pleural thickening [None]
  - Metastases to lung [None]
  - Mediastinal mass [None]
  - Metastases to lymph nodes [None]
  - Carcinoembryonic antigen increased [None]
  - Hypertension [None]
  - White blood cell count decreased [None]
  - Retroperitoneal lymphadenopathy [None]
  - Liver injury [Recovered/Resolved]
  - Abdominal mass [None]
  - Off label use [None]
  - Carbohydrate antigen 19-9 increased [None]

NARRATIVE: CASE EVENT DATE: 2017
